FAERS Safety Report 5006112-6 (Version None)
Quarter: 2006Q1

REPORT INFORMATION
  Report Type: 
  Country: None (occurrence: None)
  Receive Date: 20060328
  Receipt Date: 20051209
  Transmission Date: 20060701
  Serious: Yes (Hospitalization)
  Sender: FDA-Public Use
  Company Number: 05P-163-0316547-00

PATIENT
  Age: 43 Year
  Sex: Male
  Weight: 127 kg

DRUGS (1)
  1. HUMIRA [Suspect]
     Indication: RHEUMATOID ARTHRITIS
     Dosage: 40 MG, 1 IN 2 WK, SUBCUTANEOUS
     Route: 058
     Dates: start: 20020101, end: 20051001

REACTIONS (2)
  - PULMONARY TUBERCULOSIS [None]
  - TUBERCULIN TEST POSITIVE [None]
